FAERS Safety Report 11216929 (Version 1)
Quarter: 2015Q2

REPORT INFORMATION
  Report Type: Spontaneous
  Country: US (occurrence: US)
  Receive Date: 20150624
  Receipt Date: 20150624
  Transmission Date: 20150821
  Serious: Yes (Other)
  Sender: FDA-Public Use
  Company Number: US-TEVA-572392USA

PATIENT
  Sex: Female

DRUGS (1)
  1. COPAXONE [Suspect]
     Active Substance: GLATIRAMER ACETATE
     Indication: MULTIPLE SCLEROSIS
     Dosage: UNKNOWN FORM STRENGTH
     Route: 065

REACTIONS (7)
  - Motor dysfunction [Unknown]
  - Paralysis [Unknown]
  - Hyperventilation [Unknown]
  - Palpitations [Unknown]
  - Device issue [Unknown]
  - Chest pain [Unknown]
  - Pain [Unknown]
